FAERS Safety Report 19705391 (Version 1)
Quarter: 2021Q3

REPORT INFORMATION
  Report Type: Spontaneous
  Country: US (occurrence: US)
  Receive Date: 20210816
  Receipt Date: 20210816
  Transmission Date: 20211014
  Serious: Yes (Other)
  Sender: FDA-Public Use
  Company Number: US-PFIZER INC-202100986482

PATIENT
  Age: 74 Year
  Sex: Female
  Weight: 57.2 kg

DRUGS (2)
  1. CARBOPLATIN. [Suspect]
     Active Substance: CARBOPLATIN
     Indication: OVARIAN CANCER
     Dosage: 574.2 MG (574.2MG IN 5% DEXTROSE IV)
     Route: 042
     Dates: start: 20210628, end: 20210628
  2. CARBOPLATIN. [Suspect]
     Active Substance: CARBOPLATIN
     Dosage: 574.2 MG (574.2MG IN 5% DEXTROSE IV)
     Route: 042
     Dates: start: 20210719, end: 20210719

REACTIONS (5)
  - Injection site swelling [Recovering/Resolving]
  - Angioedema [Recovered/Resolved]
  - Injection site pruritus [Recovering/Resolving]
  - Injection site erythema [Recovering/Resolving]
  - Tenderness [Unknown]

NARRATIVE: CASE EVENT DATE: 20210628
